FAERS Safety Report 9571045 (Version 1)
Quarter: 2013Q3

REPORT INFORMATION
  Report Type: Spontaneous
  Country: US (occurrence: None)
  Receive Date: 20130927
  Receipt Date: 20130927
  Transmission Date: 20140515
  Serious: Yes (Hospitalization)
  Sender: FDA-Public Use
  Company Number: None

PATIENT
  Age: 57 Year
  Sex: Male
  Weight: 82.8 kg

DRUGS (14)
  1. CARBAMAZEPINE [Suspect]
     Indication: NEURALGIA
     Route: 048
     Dates: start: 20130507, end: 20130715
  2. CLONAZEPAM [Concomitant]
  3. ZOLPIDEM TARTRATE [Concomitant]
  4. PAROXETINE HCL [Concomitant]
  5. METHYLPHENIDATE [Concomitant]
  6. HYDROXYZINE HCL [Concomitant]
  7. PREDNISONE [Concomitant]
  8. METHYLPHENIDATE [Concomitant]
  9. HYDROPHILIC (EQV AQUAPHOR) [Concomitant]
  10. DIPHENHYDRAMINE HCL [Concomitant]
  11. AMITRIPTYLINE HCL [Concomitant]
  12. CARBAMAZEPINE [Concomitant]
  13. CLONIDINE HCL [Concomitant]
  14. RANITIDINE HCL [Concomitant]

REACTIONS (4)
  - Pruritus [None]
  - Chills [None]
  - Pyrexia [None]
  - Rash macular [None]
